FAERS Safety Report 8574641 (Version 6)
Quarter: 2012Q4

REPORT INFORMATION
  Report Type: Report from Study
  Country: GB (occurrence: GB)
  Receive Date: 20120522
  Receipt Date: 20121016
  Transmission Date: 20130627
  Serious: Yes (Congenital Anomaly, Other)
  Sender: FDA-Public Use
  Company Number: GB-B.I. PHARMACEUTICALS,INC./RIDGEFIELD-2012-BP-10813BP

PATIENT
  Sex: Female

DRUGS (2)
  1. VIRAMUNE [Suspect]
     Indication: MATERNAL EXPOSURE DURING PREGNANCY
     Route: 064
     Dates: start: 20101213
  2. EPZICOM [Concomitant]
     Indication: MATERNAL EXPOSURE DURING PREGNANCY
     Route: 064
     Dates: start: 20101213

REACTIONS (5)
  - Spina bifida [Unknown]
  - Arnold-Chiari malformation [Unknown]
  - Neural tube defect [Unknown]
  - Meningomyelocele [Unknown]
  - Cerebral ventricle dilatation [Unknown]
